FAERS Safety Report 8174419-X (Version None)
Quarter: 2012Q1

REPORT INFORMATION
  Report Type: 
  Country: None (occurrence: None)
  Receive Date: 20120229
  Receipt Date: 20120223
  Transmission Date: 20120608
  Serious: Yes (Death, Hospitalization, Disabling, Other)
  Sender: FDA-Public Use
  Company Number: FR-ELI_LILLY_AND_COMPANY-FR201201001585

PATIENT
  Sex: Male

DRUGS (11)
  1. VALSARTAN  AND HYDROCHLOROTHIAZIDE [Concomitant]
     Route: 048
  2. MOTILIUM [Concomitant]
  3. ZOFRAN [Concomitant]
     Dosage: UNK, UNKNOWN
  4. CISPLATIN [Concomitant]
     Dosage: UNK, UNKNOWN
  5. PREVISCAN [Concomitant]
     Dosage: UNK, UNKNOWN
  6. PLAVIX [Concomitant]
     Route: 048
  7. GEMZAR [Suspect]
     Indication: BRONCHIAL CARCINOMA
     Dosage: UNK, UNKNOWN
     Route: 042
  8. AVASTIN [Concomitant]
     Dosage: UNK, UNKNOWN
  9. CARBOPLATIN [Concomitant]
     Dosage: UNK, UNKNOWN
  10. ALLOPURINOL [Concomitant]
     Dosage: 100 MG, QD
     Route: 048
  11. ACETAMINOPHEN [Concomitant]
     Dosage: UNK, UNKNOWN

REACTIONS (14)
  - RENAL FAILURE ACUTE [None]
  - CARDIAC FAILURE [None]
  - BRONCHIAL OBSTRUCTION [None]
  - BRONCHITIS [None]
  - ANGINA UNSTABLE [None]
  - PLEURAL EFFUSION [None]
  - NAUSEA [None]
  - DYSPNOEA [None]
  - ARRHYTHMIA [None]
  - HYPERKALAEMIA [None]
  - VENTRICULAR HYPOKINESIA [None]
  - RECTAL HAEMORRHAGE [None]
  - COMA [None]
  - PERICARDITIS [None]
